FAERS Safety Report 6278149-0 (Version None)
Quarter: 2009Q3

REPORT INFORMATION
  Report Type: 
  Country: None (occurrence: None)
  Receive Date: 20090720
  Receipt Date: 20090603
  Transmission Date: 20100115
  Serious: Yes (Other)
  Sender: FDA-Public Use
  Company Number: B0577428A

PATIENT
  Age: 27 Year
  Sex: Male

DRUGS (9)
  1. LAMIVUDINE [Suspect]
     Indication: HIV INFECTION
  2. ZIDOVUDINE [Suspect]
     Indication: HIV INFECTION
  3. EFAVIRENZ [Suspect]
     Indication: HIV INFECTION
  4. NELFINAVIR MESYLATE [Suspect]
     Indication: HIV INFECTION
  5. RIFAMPICIN [Concomitant]
  6. ISONIAZID [Concomitant]
  7. PYRAZINAMIDE [Concomitant]
  8. ETHAMBUTOL [Concomitant]
  9. PYRIDOXINE [Concomitant]

REACTIONS (7)
  - BRAIN OEDEMA [None]
  - CENTRAL NERVOUS SYSTEM LESION [None]
  - CONFUSIONAL STATE [None]
  - CONVULSION [None]
  - DRUG INTOLERANCE [None]
  - IMMUNE RECONSTITUTION SYNDROME [None]
  - NERVOUS SYSTEM DISORDER [None]
